FAERS Safety Report 4395846-2 (Version None)
Quarter: 2004Q3

REPORT INFORMATION
  Report Type: 
  Country: None (occurrence: None)
  Receive Date: 20040712
  Receipt Date: 20040702
  Transmission Date: 20050211
  Serious: Yes (Hospitalization)
  Sender: FDA-Public Use
  Company Number: 2004UW10809

PATIENT
  Age: 49 Year
  Sex: Male

DRUGS (3)
  1. CRESTOR [Suspect]
  2. GLUCOVANCE [Concomitant]
  3. LOTREL [Concomitant]

REACTIONS (9)
  - ABASIA [None]
  - DIABETES MELLITUS INADEQUATE CONTROL [None]
  - GOUT [None]
  - JOINT EFFUSION [None]
  - LIMB INJURY [None]
  - MUSCLE ABSCESS [None]
  - PAIN IN EXTREMITY [None]
  - TENDERNESS [None]
  - WHITE BLOOD CELL COUNT INCREASED [None]
